FAERS Safety Report 19896034 (Version 2)
Quarter: 2021Q4

REPORT INFORMATION
  Report Type: Spontaneous
  Country: FR (occurrence: FR)
  Receive Date: 20210929
  Receipt Date: 20211018
  Transmission Date: 20220303
  Serious: Yes (Hospitalization)
  Sender: FDA-Public Use
  Company Number: FR-CELGENE-FRA-20210502015

PATIENT
  Age: 76 Year
  Sex: Male
  Weight: 61 kg

DRUGS (12)
  1. DEXAMETHASONE [Suspect]
     Active Substance: DEXAMETHASONE
     Indication: Plasma cell myeloma
     Dosage: 20 MILLIGRAM, QW
     Route: 048
     Dates: start: 20160722, end: 20190912
  2. LENALIDOMIDE [Suspect]
     Active Substance: LENALIDOMIDE
     Indication: Plasma cell myeloma
     Dosage: 210 MILLIGRAM, Q21D
     Route: 048
     Dates: start: 20160722, end: 20210422
  3. PENICILLIN V [Concomitant]
     Active Substance: PENICILLIN V
     Indication: Antibiotic prophylaxis
     Dosage: 1000000 IU (INTERNATIONAL UNIT)
     Route: 048
     Dates: start: 20160722
  4. ESOMEPRAZOLE [Concomitant]
     Active Substance: ESOMEPRAZOLE
     Indication: Hyperglycaemia
     Dosage: 40 MILLIGRAM, QD
     Route: 048
     Dates: start: 20160902
  5. ESOMEPRAZOLE [Concomitant]
     Active Substance: ESOMEPRAZOLE
     Indication: Gastrooesophageal reflux prophylaxis
  6. REPAGLINIDE [Concomitant]
     Active Substance: REPAGLINIDE
     Indication: Hyperglycaemia
     Dosage: 4 MILLIGRAM
     Route: 048
     Dates: start: 20190724
  7. REPAGLINIDE [Concomitant]
     Active Substance: REPAGLINIDE
     Indication: Type 2 diabetes mellitus
     Dosage: 2 MILLIGRAM
     Route: 048
     Dates: start: 20201210
  8. TRAMADOL [Concomitant]
     Active Substance: TRAMADOL
     Indication: Pain prophylaxis
     Dosage: 200 MILLIGRAM, QD
     Route: 048
     Dates: start: 20160826
  9. VALACYCLOVIR HYDROCHLORIDE [Concomitant]
     Active Substance: VALACYCLOVIR HYDROCHLORIDE
     Indication: Antiviral prophylaxis
     Dosage: 1000 MILLIGRAM, QD
     Route: 048
     Dates: start: 20160722
  10. FLUOROURACIL [Concomitant]
     Active Substance: FLUOROURACIL
     Indication: Actinic keratosis
     Dosage: 1, QD
     Route: 061
     Dates: start: 20200916
  11. LEUCOVORIN CALCIUM [Concomitant]
     Active Substance: LEUCOVORIN CALCIUM
     Indication: Prophylaxis
     Dosage: 50 MILLIGRAM, QD
     Route: 048
     Dates: start: 20160722
  12. XARELTO [Concomitant]
     Active Substance: RIVAROXABAN
     Indication: Atrial flutter
     Dosage: 20 MILLIGRAM, QD
     Route: 048
     Dates: start: 20201210

REACTIONS (1)
  - Metastatic squamous cell carcinoma [Recovered/Resolved]

NARRATIVE: CASE EVENT DATE: 20210416
